FAERS Safety Report 5526961-5 (Version None)
Quarter: 2007Q4

REPORT INFORMATION
  Report Type: 
  Country: None (occurrence: None)
  Receive Date: 20071127
  Receipt Date: 20071119
  Transmission Date: 20080405
  Serious: Yes (Other)
  Sender: FDA-Public Use
  Company Number: JP-PFIZER INC-2007097574

PATIENT
  Age: 73 Year
  Sex: Male

DRUGS (3)
  1. NORVASC [Suspect]
     Dosage: DAILY DOSE:5MG
     Route: 048
  2. DIOVAN [Concomitant]
     Route: 048
  3. AMLODIN [Concomitant]
     Route: 048

REACTIONS (3)
  - AGGRESSION [None]
  - AGITATION [None]
  - CONFUSIONAL STATE [None]
